FAERS Safety Report 10207834 (Version 2)
Quarter: 2014Q3

REPORT INFORMATION
  Report Type: Spontaneous
  Country: US (occurrence: US)
  Receive Date: 20140530
  Receipt Date: 20140904
  Transmission Date: 20150326
  Serious: Yes (Other)
  Sender: FDA-Public Use
  Company Number: US-GLAXOSMITHKLINE-A1074374A

PATIENT
  Age: 25 Year
  Sex: Female

DRUGS (2)
  1. UNKNOWN [Concomitant]
     Active Substance: UNSPECIFIED INGREDIENT
  2. BENLYSTA [Suspect]
     Active Substance: BELIMUMAB
     Indication: MIXED CONNECTIVE TISSUE DISEASE
     Dosage: 500MG MONTHLY
     Route: 042
     Dates: start: 20120327

REACTIONS (1)
  - Leukopenia [Unknown]

NARRATIVE: CASE EVENT DATE: 20140520
